FAERS Safety Report 8076267-8 (Version None)
Quarter: 2012Q1

REPORT INFORMATION
  Report Type: 
  Country: None (occurrence: None)
  Receive Date: 20120127
  Receipt Date: 20120123
  Transmission Date: 20120608
  Serious: Yes (Other)
  Sender: FDA-Public Use
  Company Number: NZ-ROCHE-1022882

PATIENT
  Sex: Female
  Weight: 20.6 kg

DRUGS (4)
  1. LAMOTRIGINE [Suspect]
     Indication: EPILEPSY
     Dosage: 5 MG MORNING , 7.5 MG NIGHT
     Route: 048
     Dates: start: 20040801
  2. CLONAZEPAM [Suspect]
     Indication: EPILEPSY
     Route: 048
     Dates: start: 20040801
  3. VALPROATE SODIUM [Suspect]
     Indication: EPILEPSY
     Route: 048
     Dates: start: 20040501, end: 20050401
  4. PHENYTOIN [Concomitant]
     Indication: EPILEPSY
     Route: 048
     Dates: start: 20090207, end: 20090221

REACTIONS (1)
  - PRECOCIOUS PUBERTY [None]
